FAERS Safety Report 24991882 (Version 7)
Quarter: 2025Q2

REPORT INFORMATION
  Report Type: Spontaneous
  Country: US (occurrence: US)
  Receive Date: 20250220
  Receipt Date: 20250612
  Transmission Date: 20250717
  Serious: Yes (Hospitalization, Other)
  Sender: UCB
  Company Number: US-UCBSA-2025009271

PATIENT
  Age: 25 Year
  Sex: Female
  Weight: 215 kg

DRUGS (5)
  1. BRIVIACT [Suspect]
     Active Substance: BRIVARACETAM
     Indication: Partial seizures
     Dosage: 100 MILLIGRAM, 2X/DAY (BID)
     Dates: start: 202009
  2. BRIVIACT [Suspect]
     Active Substance: BRIVARACETAM
  3. ONFI [Suspect]
     Active Substance: CLOBAZAM
     Indication: Product used for unknown indication
  4. ONFI [Suspect]
     Active Substance: CLOBAZAM
  5. XCOPRI [Suspect]
     Active Substance: CENOBAMATE
     Indication: Product used for unknown indication

REACTIONS (4)
  - Corpus callosotomy [Recovered/Resolved]
  - Seizure [Unknown]
  - Neurological procedural complication [Recovering/Resolving]
  - Fall [Unknown]

NARRATIVE: CASE EVENT DATE: 20250201
